FAERS Safety Report 24546325 (Version 1)
Quarter: 2024Q4

REPORT INFORMATION
  Report Type: Other
  Country: US (occurrence: US)
  Receive Date: 20241024
  Receipt Date: 20241024
  Transmission Date: 20250114
  Serious: No
  Sender: NOSTRUM
  Company Number: US-Nostrum Laboratories, Inc.-2163313

PATIENT
  Age: 68 Year
  Sex: Female

DRUGS (2)
  1. HYDROCODONE BITARTRATE\IBUPROFEN [Suspect]
     Active Substance: HYDROCODONE BITARTRATE\IBUPROFEN
     Indication: Product used for unknown indication
  2. GABAPENTIN [Concomitant]
     Active Substance: GABAPENTIN

REACTIONS (2)
  - Rash [Unknown]
  - Confusional state [Unknown]
